FAERS Safety Report 22277545 (Version 1)
Quarter: 2023Q2

REPORT INFORMATION
  Report Type: Spontaneous
  Country: US (occurrence: US)
  Receive Date: 20230503
  Receipt Date: 20230503
  Transmission Date: 20230722
  Serious: No
  Sender: FDA-Public Use
  Company Number: US-HORIZON THERAPEUTICS-HZN-2022-009795

PATIENT

DRUGS (1)
  1. BUPHENYL [Suspect]
     Active Substance: SODIUM PHENYLBUTYRATE
     Indication: Urea cycle disorder
     Dosage: UNK (FIRST DOSE)
     Route: 048

REACTIONS (2)
  - Product use complaint [Recovered/Resolved]
  - Treatment noncompliance [Recovered/Resolved]
